FAERS Safety Report 21052397 (Version 1)
Quarter: 2022Q3

REPORT INFORMATION
  Report Type: Spontaneous
  Country: US (occurrence: None)
  Receive Date: 20220707
  Receipt Date: 20220707
  Transmission Date: 20221026
  Serious: No
  Sender: FDA-Public Use
  Company Number: 2022A222570

PATIENT
  Sex: Female
  Weight: 86.2 kg

DRUGS (1)
  1. SYMBICORT [Suspect]
     Active Substance: BUDESONIDE\FORMOTEROL FUMARATE DIHYDRATE
     Indication: Multiple allergies
     Dosage: 2 INHALATIONS 2 TIMES A DAY
     Route: 055

REACTIONS (3)
  - COVID-19 [Unknown]
  - Eye disorder [Unknown]
  - Product use in unapproved indication [Unknown]
